FAERS Safety Report 8502669 (Version 2)
Quarter: 2012Q4

REPORT INFORMATION
  Report Type: Report from Study
  Country: PL (occurrence: PL)
  Receive Date: 20120410
  Receipt Date: 20121119
  Transmission Date: 20130627
  Serious: Yes (Hospitalization)
  Sender: FDA-Public Use
  Company Number: PL-B.I. PHARMACEUTICALS,INC./RIDGEFIELD-2012-EU-01837EU

PATIENT
  Age: 39 Year
  Sex: Female
  Weight: 93 kg

DRUGS (7)
  1. DABIGATRAN [Suspect]
     Indication: HEART VALVE REPLACEMENT
     Dosage: 600 mg
     Route: 048
     Dates: start: 20120316
  2. BISOPROLOL [Concomitant]
     Indication: HYPERTENSION
     Dosage: 3.75 mg
     Route: 048
  3. FUROSEMIDUM [Concomitant]
     Indication: HYPERTENSION
     Dosage: 40 NR
     Route: 048
     Dates: start: 20120316, end: 20120328
  4. KALIPOZ [Concomitant]
     Indication: HYPOKALAEMIA
     Dosage: 2 anz
     Route: 048
     Dates: start: 20120316, end: 20120328
  5. SORBIFER [Concomitant]
     Indication: ANAEMIA
     Dosage: 2 anz
     Route: 048
     Dates: start: 20120317
  6. INSULIN NOVO RAPID [Concomitant]
     Indication: DIABETES MELLITUS
     Dosage: 40 U
     Route: 058
  7. INSULIN INSULATARD [Concomitant]
     Indication: DIABETES MELLITUS
     Dosage: 16 U
     Route: 058

REACTIONS (1)
  - Wound infection [Recovered/Resolved]
